FAERS Safety Report 13988890 (Version 1)
Quarter: 2017Q3

REPORT INFORMATION
  Report Type: Spontaneous
  Country: US (occurrence: US)
  Receive Date: 20170919
  Receipt Date: 20170919
  Transmission Date: 20171128
  Serious: Yes (Disabling)
  Sender: FDA-Public Use
  Company Number: None

PATIENT
  Age: 72 Year
  Sex: Male
  Weight: 93.6 kg

DRUGS (1)
  1. LEVAQUIN [Suspect]
     Active Substance: LEVOFLOXACIN
     Indication: PROSTATITIS
     Route: 048
     Dates: start: 20160808, end: 20160811

REACTIONS (6)
  - Tendon pain [None]
  - Pain in extremity [None]
  - Musculoskeletal stiffness [None]
  - Loss of personal independence in daily activities [None]
  - Pain [None]
  - Tendon rupture [None]

NARRATIVE: CASE EVENT DATE: 20160811
